FAERS Safety Report 4836381-4 (Version None)
Quarter: 2005Q4

REPORT INFORMATION
  Report Type: 
  Country: None (occurrence: None)
  Receive Date: 20051123
  Receipt Date: 20051003
  Transmission Date: 20060501
  Serious: Yes (Hospitalization, Other)
  Sender: FDA-Public Use
  Company Number: US-BRISTOL-MYERS SQUIBB COMPANY-13133889

PATIENT
  Age: 13 Year
  Sex: Male

DRUGS (1)
  1. ARIPIPRAZOLE [Suspect]
     Indication: SCHIZOPHRENIA
     Route: 048
     Dates: start: 20050510, end: 20051010

REACTIONS (4)
  - FAMILY STRESS [None]
  - HALLUCINATION, AUDITORY [None]
  - HOMICIDAL IDEATION [None]
  - SUICIDAL IDEATION [None]
